FAERS Safety Report 6989175-8 (Version None)
Quarter: 2010Q3

REPORT INFORMATION
  Report Type: 
  Country: None (occurrence: None)
  Receive Date: 20100916
  Receipt Date: 20091013
  Transmission Date: 20110219
  Serious: Yes (Other)
  Sender: FDA-Public Use
  Company Number: US-PFIZER INC-2009260127

PATIENT
  Sex: Female
  Weight: 95.238 kg

DRUGS (11)
  1. NEURONTIN [Suspect]
     Indication: NEUROPATHY PERIPHERAL
     Dosage: 300 MG, 3X/DAY
     Route: 048
     Dates: start: 20060801
  2. NEURONTIN [Suspect]
     Indication: FIBROMYALGIA
  3. LYRICA [Suspect]
     Indication: NEUROPATHY PERIPHERAL
     Dates: start: 20070201
  4. SOMA [Suspect]
     Indication: MUSCLE RELAXANT THERAPY
  5. ATENOLOL [Concomitant]
  6. ZYRTEC [Concomitant]
  7. PRAVACHOL [Concomitant]
  8. ATIVAN [Concomitant]
  9. EFFEXOR [Concomitant]
  10. PROMETHAZINE [Concomitant]
  11. ZANAFLEX [Concomitant]

REACTIONS (1)
  - HYPERTENSION [None]
